FAERS Safety Report 8409766-7 (Version None)
Quarter: 2012Q2

REPORT INFORMATION
  Report Type: 
  Country: None (occurrence: None)
  Receive Date: 20120605
  Receipt Date: 20120524
  Transmission Date: 20120825
  Serious: Yes (Hospitalization, Other)
  Sender: FDA-Public Use
  Company Number: US-JNJFOC-20120520451

PATIENT

DRUGS (4)
  1. REMICADE [Suspect]
     Indication: CROHN'S DISEASE
     Route: 042
  2. ACETAMINOPHEN [Concomitant]
     Indication: PREMEDICATION
     Route: 048
  3. REMICADE [Suspect]
     Indication: COLITIS ULCERATIVE
     Route: 042
  4. BENADRYL [Concomitant]
     Indication: PREMEDICATION
     Route: 065

REACTIONS (5)
  - HOSPITALISATION [None]
  - DYSPNOEA [None]
  - CHILLS [None]
  - INFUSION RELATED REACTION [None]
  - CHEST DISCOMFORT [None]
